FAERS Safety Report 19324923 (Version 1)
Quarter: 2021Q2

REPORT INFORMATION
  Report Type: Report from Study
  Country: PL (occurrence: PL)
  Receive Date: 20210528
  Receipt Date: 20210528
  Transmission Date: 20210717
  Serious: Yes (Death, Hospitalization)
  Sender: FDA-Public Use
  Company Number: PL-EISAI MEDICAL RESEARCH-EC-2021-093498

PATIENT
  Age: 81 Year
  Sex: Male
  Weight: 92 kg

DRUGS (14)
  1. ENARENAL [Concomitant]
     Active Substance: ENALAPRIL
     Dates: start: 201201
  2. SPIRONOL [Concomitant]
     Active Substance: SPIRONOLACTONE
     Dates: start: 201201
  3. PEMBROLIZUMAB. [Suspect]
     Active Substance: PEMBROLIZUMAB
     Indication: NON-SMALL CELL LUNG CANCER METASTATIC
     Route: 041
     Dates: start: 20200506, end: 20200729
  4. CONCOR COR [Concomitant]
     Active Substance: BISOPROLOL FUMARATE
     Dates: start: 201201
  5. LENVATINIB [Suspect]
     Active Substance: LENVATINIB
     Indication: NON-SMALL CELL LUNG CANCER METASTATIC
     Route: 048
     Dates: start: 20200506, end: 20200728
  6. ACARD [Concomitant]
     Dates: start: 201201
  7. ZOCOR [Concomitant]
     Active Substance: SIMVASTATIN
     Dates: start: 201201
  8. PEMBROLIZUMAB. [Suspect]
     Active Substance: PEMBROLIZUMAB
     Route: 041
     Dates: start: 20200819, end: 20200819
  9. OMNIC [Concomitant]
     Active Substance: TAMSULOSIN HYDROCHLORIDE
     Dates: start: 200801
  10. TRITTICO [Concomitant]
     Active Substance: TRAZODONE HYDROCHLORIDE
     Dates: start: 201912
  11. FORMOTEROL FUMARATE [Concomitant]
     Active Substance: FORMOTEROL FUMARATE
     Dates: start: 201201
  12. THYROZOL [Concomitant]
     Active Substance: METHIMAZOLE
     Dates: start: 20200708
  13. PEMBROLIZUMAB. [Suspect]
     Active Substance: PEMBROLIZUMAB
     Route: 041
     Dates: start: 20200909
  14. CLEXANE [Concomitant]
     Active Substance: ENOXAPARIN SODIUM
     Dates: start: 20200505, end: 20200820

REACTIONS (1)
  - Peripheral ischaemia [Recovered/Resolved]

NARRATIVE: CASE EVENT DATE: 20200821
